FAERS Safety Report 8862037 (Version 1)
Quarter: 2012Q4

REPORT INFORMATION
  Report Type: 
  Country: US (occurrence: US)
  Receive Date: 20121025
  Receipt Date: 20121025
  Transmission Date: 20130627
  Serious: No
  Sender: FDA-Public Use
  Company Number: US-TARO-2012P1047586

PATIENT
  Age: 66 Year
  Sex: Female
  Weight: 76.2 kg

DRUGS (5)
  1. CLOTRIMAZOLE [Suspect]
     Route: 061
     Dates: start: 201202, end: 20120625
  2. LEVOTHYROXINE [Concomitant]
     Dates: end: 20120625
  3. LOSARTAN [Concomitant]
     Dates: end: 20120625
  4. ALPHAGAN EYE DROPS [Concomitant]
     Dates: end: 20120625
  5. LANSOPRAZOLE [Concomitant]

REACTIONS (5)
  - Coeliac disease [Not Recovered/Not Resolved]
  - Diarrhoea [Not Recovered/Not Resolved]
  - Abdominal pain [Not Recovered/Not Resolved]
  - Aphagia [Not Recovered/Not Resolved]
  - Colitis [Not Recovered/Not Resolved]
